FAERS Safety Report 8631473 (Version 3)
Quarter: 2012Q4

REPORT INFORMATION
  Report Type: 
  Country: US (occurrence: US)
  Receive Date: 20120622
  Receipt Date: 20121004
  Transmission Date: 20130627
  Serious: Yes (Hospitalization, Other)
  Sender: FDA-Public Use
  Company Number: US-RB-041550-12

PATIENT
  Age: 0 None
  Sex: Female

DRUGS (8)
  1. SUBOXONE TABLETS [Suspect]
     Indication: DRUG DEPENDENCE
     Dosage: Dosing details unknown
     Route: 064
     Dates: start: 201110, end: 20120617
  2. SUBOXONE TABLETS [Suspect]
     Dosage: Unknown dosage details
     Route: 063
     Dates: start: 20120617, end: 20120623
  3. NICOTINE [Suspect]
     Indication: NICOTINE DEPENDENCE
     Dosage: One pack per day
     Route: 064
     Dates: end: 20120617
  4. HYDROCODONE [Suspect]
     Indication: PRODUCT USED FOR UNKNOWN INDICATION
     Dosage: Dosing details unknown
     Route: 064
  5. TEGRETOL [Suspect]
     Indication: PRODUCT USED FOR UNKNOWN INDICATION
     Dosage: Dosing details unknown
     Route: 064
  6. DEPAKOTE [Suspect]
     Indication: BIPOLAR DISORDER
     Dosage: Dosing details unknown
     Route: 064
  7. ULTRAM [Suspect]
     Indication: PRODUCT USED FOR UNKNOWN INDICATION
     Dosage: Dosing details unknown
     Route: 064
  8. BETAMETHASONE [Suspect]
     Indication: PREMATURE LABOUR
     Dosage: Twice
     Route: 064
     Dates: start: 201205, end: 201205

REACTIONS (11)
  - Premature baby [Recovered/Resolved]
  - Low birth weight baby [Recovered/Resolved]
  - Neonatal respiratory distress syndrome [Recovered/Resolved]
  - Jaundice neonatal [Recovered/Resolved]
  - Poor sucking reflex [Recovered/Resolved]
  - Drug withdrawal syndrome neonatal [Recovered/Resolved]
  - Umbilical hernia [Recovered/Resolved]
  - Grunting [Recovered/Resolved]
  - Neonatal disorder [Recovered/Resolved]
  - Exposure during breast feeding [Recovered/Resolved]
  - Foetal exposure during pregnancy [Recovered/Resolved]
